FAERS Safety Report 18067071 (Version 7)
Quarter: 2022Q3

REPORT INFORMATION
  Report Type: Report from Study
  Country: CA (occurrence: CA)
  Receive Date: 20200724
  Receipt Date: 20220711
  Transmission Date: 20221026
  Serious: Yes (Hospitalization, Congenital Anomaly, Other)
  Sender: FDA-Public Use
  Company Number: CA-GLAXOSMITHKLINE-CA2020AMR128737

PATIENT

DRUGS (9)
  1. ALBUTEROL SULFATE [Suspect]
     Active Substance: ALBUTEROL SULFATE
     Indication: Product used for unknown indication
     Dosage: UNK, 100 MCG, AS NEEDED
  2. NUCALA [Suspect]
     Active Substance: MEPOLIZUMAB
     Indication: Asthma
     Dosage: 100 MG, Z(MONTHLY)
  3. NUCALA [Suspect]
     Active Substance: MEPOLIZUMAB
     Indication: Asthma
     Dosage: 100 MG, Z EVERY 4 WEEKS
     Route: 058
     Dates: start: 20201106
  4. SYMBICORT [Suspect]
     Active Substance: BUDESONIDE\FORMOTEROL FUMARATE DIHYDRATE
     Indication: Product used for unknown indication
     Dosage: 2 DF, BID
     Route: 055
  5. SYMBICORT [Suspect]
     Active Substance: BUDESONIDE\FORMOTEROL FUMARATE DIHYDRATE
     Dosage: 3 DF, BID, 8 PUFF
     Route: 055
     Dates: start: 202007
  6. SPIRIVA RESPIMAT [Suspect]
     Active Substance: TIOTROPIUM BROMIDE
     Indication: Product used for unknown indication
     Dosage: 1 DF, QD, 2 INH DIE
     Route: 055
  7. SYMBICORT [Suspect]
     Active Substance: BUDESONIDE\FORMOTEROL FUMARATE DIHYDRATE
     Indication: Product used for unknown indication
     Dosage: UNK
     Route: 055
  8. TIOTROPIUM BROMIDE MONOHYDRATE [Suspect]
     Active Substance: TIOTROPIUM BROMIDE MONOHYDRATE
     Indication: Product used for unknown indication
     Dosage: 1 DF, QD
  9. TIOTROPIUM BROMIDE MONOHYDRATE [Suspect]
     Active Substance: TIOTROPIUM BROMIDE MONOHYDRATE
     Dosage: 2 DF, QD

REACTIONS (10)
  - Asthma [Not Recovered/Not Resolved]
  - Asthmatic crisis [Not Recovered/Not Resolved]
  - Bronchospasm [Not Recovered/Not Resolved]
  - Loss of personal independence in daily activities [Not Recovered/Not Resolved]
  - Dyspnoea [Not Recovered/Not Resolved]
  - Wheezing [Not Recovered/Not Resolved]
  - Sleep disorder due to a general medical condition [Not Recovered/Not Resolved]
  - Full blood count abnormal [Not Recovered/Not Resolved]
  - Quality of life decreased [Not Recovered/Not Resolved]
  - Therapeutic product effect incomplete [Not Recovered/Not Resolved]
